FAERS Safety Report 12553023 (Version 8)
Quarter: 2018Q3

REPORT INFORMATION
  Report Type: Spontaneous
  Country: US (occurrence: US)
  Receive Date: 20160713
  Receipt Date: 20180823
  Transmission Date: 20181010
  Serious: Yes (Hospitalization)
  Sender: FDA-Public Use
  Company Number: US-ACTELION-A-NJ2016-139046

PATIENT
  Age: 27 Year
  Sex: Female
  Weight: 48.73 kg

DRUGS (6)
  1. COUMADIN [Concomitant]
     Active Substance: WARFARIN SODIUM
  2. OPSUMIT [Concomitant]
     Active Substance: MACITENTAN
     Indication: PULMONARY HYPERTENSION
     Route: 048
  3. VELETRI [Suspect]
     Active Substance: EPOPROSTENOL
     Dosage: 38 NG/KG, PER MIN
     Route: 042
  4. LETAIRIS [Concomitant]
     Active Substance: AMBRISENTAN
  5. ADCIRCA [Concomitant]
     Active Substance: TADALAFIL
  6. VELETRI [Suspect]
     Active Substance: EPOPROSTENOL
     Indication: PULMONARY HYPERTENSION
     Dosage: 30 NG/KG, PER MIN
     Route: 042
     Dates: start: 20150716

REACTIONS (10)
  - Chills [Unknown]
  - Device related infection [Unknown]
  - Hyperhidrosis [Unknown]
  - Catheter site inflammation [Unknown]
  - Hospitalisation [Not Recovered/Not Resolved]
  - Condition aggravated [Unknown]
  - Pyrexia [Unknown]
  - Catheter site pain [Unknown]
  - Medical device change [Unknown]
  - Pain [Unknown]

NARRATIVE: CASE EVENT DATE: 201609
